FAERS Safety Report 12117784 (Version 1)
Quarter: 2016Q1

REPORT INFORMATION
  Report Type: Spontaneous
  Country: US (occurrence: US)
  Receive Date: 20160226
  Receipt Date: 20160226
  Transmission Date: 20160526
  Serious: Yes (Hospitalization, Other)
  Sender: FDA-Public Use
  Company Number: US-ZYDUS-010353

PATIENT
  Age: 78 Year
  Sex: Female

DRUGS (2)
  1. CLOPIDOGREL [Suspect]
     Active Substance: CLOPIDOGREL BISULFATE
     Indication: PRODUCT USED FOR UNKNOWN INDICATION
     Route: 065
  2. ACETYLSALICYLIC ACID [Suspect]
     Active Substance: ASPIRIN
     Indication: PRODUCT USED FOR UNKNOWN INDICATION
     Route: 065

REACTIONS (8)
  - Ecchymosis [Recovering/Resolving]
  - Lung infiltration [Recovering/Resolving]
  - Pleural effusion [Unknown]
  - Pulmonary alveolar haemorrhage [Unknown]
  - Petechiae [Unknown]
  - Haemoptysis [Recovering/Resolving]
  - Crepitations [Unknown]
  - Dyspnoea [Recovering/Resolving]
